FAERS Safety Report 19126542 (Version 3)
Quarter: 2021Q2

REPORT INFORMATION
  Report Type: Spontaneous
  Country: US (occurrence: US)
  Receive Date: 20210412
  Receipt Date: 20210413
  Transmission Date: 20210717
  Serious: Yes (Death, Hospitalization, Other)
  Sender: FDA-Public Use
  Company Number: US-B.I. PHARMACEUTICALS,INC./RIDGEFIELD-2021-BI-096150

PATIENT
  Age: 87 Year
  Sex: Male

DRUGS (1)
  1. OFEV [Suspect]
     Active Substance: NINTEDANIB
     Indication: PRODUCT USED FOR UNKNOWN INDICATION
     Dosage: 100 MG BID
     Route: 065
     Dates: start: 20190305

REACTIONS (5)
  - Pleural effusion [Unknown]
  - Death [Fatal]
  - Myocardial infarction [Unknown]
  - Myocardial infarction [Unknown]
  - Dyspnoea [Unknown]

NARRATIVE: CASE EVENT DATE: 2020
